FAERS Safety Report 21667779 (Version 2)
Quarter: 2024Q1

REPORT INFORMATION
  Report Type: Spontaneous
  Country: US (occurrence: US)
  Receive Date: 20221201
  Receipt Date: 20240212
  Transmission Date: 20240410
  Serious: Yes (Hospitalization)
  Sender: FDA-Public Use
  Company Number: US-PFIZER INC-202201343292

PATIENT
  Age: 61 Year
  Sex: Female

DRUGS (19)
  1. IBRANCE [Suspect]
     Active Substance: PALBOCICLIB
     Dosage: DAILY FOR 21 DAYS, THEN OFF FOR 7 DAYS (REPEAT EVERY 28 DAYS)
     Route: 048
     Dates: start: 20221118
  2. IBRANCE [Suspect]
     Active Substance: PALBOCICLIB
     Dosage: FOR 21 DAYS ON, THEN 7 DAYS OFF
     Route: 048
  3. ASPIRIN [Concomitant]
     Active Substance: ASPIRIN
     Dosage: UNK
  4. CALCIUM [Concomitant]
     Active Substance: CALCIUM
     Dosage: 500
  5. LEXAPRO [Concomitant]
     Active Substance: ESCITALOPRAM OXALATE
     Dosage: UNK
  6. MODERNA COVID-19 VACCINE, BIVALENT (ORIGINAL AND OMICRON BA.4/BA.5) [Concomitant]
     Dosage: 6 - 50 MCG
  7. LORAZEPAM [Concomitant]
     Active Substance: LORAZEPAM
     Dosage: UNK
  8. SIMVASTATIN [Concomitant]
     Active Substance: SIMVASTATIN
     Dosage: UNK
  9. LOSARTAN POTASSIUM [Concomitant]
     Active Substance: LOSARTAN POTASSIUM
     Dosage: UNK
  10. METFORMIN HYDROCHLORIDE [Concomitant]
     Active Substance: METFORMIN HYDROCHLORIDE
     Dosage: UNK
  11. FUROSEMIDE [Concomitant]
     Active Substance: FUROSEMIDE
     Dosage: UNK
  12. CARVEDILOL [Concomitant]
     Active Substance: CARVEDILOL
     Dosage: 3.125 M
  13. ESCITALOPRAM OXALATE [Concomitant]
     Active Substance: ESCITALOPRAM OXALATE
     Dosage: UNK
  14. SPIRONOLACTONE [Concomitant]
     Active Substance: SPIRONOLACTONE
     Dosage: UNK
  15. ANASTROZOLE [Concomitant]
     Active Substance: ANASTROZOLE
     Dosage: UNK
  16. TRULICITY [Concomitant]
     Active Substance: DULAGLUTIDE
     Dosage: UNK
  17. HUMALOG KWIKPEN [Concomitant]
     Active Substance: INSULIN LISPRO
     Dosage: 100/ML
  18. FLUCELVAX QUADRIVALENT NOS [Concomitant]
     Active Substance: INFLUENZA A VIRUS A/BRISBANE/10/2010 (H1N1) ANTIGEN (MDCK CELL DERIVED, PROPIOLACTONE INACTIVATED)\I
     Dosage: 2022-20 - 60MCG
  19. MODERNA COVID-19 VACCINE [Concomitant]
     Active Substance: ELASOMERAN
     Dosage: 12Y UP- 100MCG

REACTIONS (3)
  - Pneumonia [Not Recovered/Not Resolved]
  - Lung disorder [Not Recovered/Not Resolved]
  - Nausea [Recovered/Resolved]

NARRATIVE: CASE EVENT DATE: 20221118
